FAERS Safety Report 19752125 (Version 15)
Quarter: 2023Q2

REPORT INFORMATION
  Report Type: Report from Study
  Country: JP (occurrence: JP)
  Receive Date: 20210827
  Receipt Date: 20230512
  Transmission Date: 20230722
  Serious: Yes (Hospitalization)
  Sender: FDA-Public Use
  Company Number: JP-ABBVIE-21K-087-4056114-00

PATIENT
  Age: 75 Year
  Sex: Female

DRUGS (2)
  1. CARBIDOPA\LEVODOPA [Suspect]
     Active Substance: CARBIDOPA\LEVODOPA
     Indication: Parkinson^s disease
     Dosage: DRUG DISCONTINUED IN 2021.
     Route: 050
     Dates: start: 20210727
  2. CARBIDOPA\LEVODOPA [Suspect]
     Active Substance: CARBIDOPA\LEVODOPA
     Route: 050
     Dates: start: 20210805

REACTIONS (22)
  - Loss of consciousness [Recovered/Resolved]
  - Stoma site hypergranulation [Unknown]
  - Mobility decreased [Unknown]
  - Device use issue [Unknown]
  - Stoma site erythema [Unknown]
  - Motor dysfunction [Unknown]
  - Pain in extremity [Unknown]
  - Limb discomfort [Unknown]
  - Stoma site pain [Unknown]
  - Gait inability [Recovered/Resolved]
  - Mobility decreased [Unknown]
  - Irritability [Unknown]
  - Gait disturbance [Unknown]
  - Malaise [Unknown]
  - Bradykinesia [Unknown]
  - Stoma site haemorrhage [Unknown]
  - Flatulence [Unknown]
  - Stoma site discharge [Not Recovered/Not Resolved]
  - Drug ineffective [Unknown]
  - Device alarm issue [Unknown]
  - Waist circumference increased [Unknown]
  - Abdominal distension [Unknown]

NARRATIVE: CASE EVENT DATE: 20210822
